FAERS Safety Report 4820569-2 (Version None)
Quarter: 2005Q4

REPORT INFORMATION
  Report Type: 
  Country: None (occurrence: None)
  Receive Date: 20051104
  Receipt Date: 20051024
  Transmission Date: 20060501
  Serious: Yes (Hospitalization, Disabling)
  Sender: FDA-Public Use
  Company Number: 2005GB02063

PATIENT
  Sex: Male

DRUGS (8)
  1. QUETIAPINE FUMARATE [Suspect]
     Indication: MANIA
     Route: 048
  2. PRIADEL [Interacting]
     Indication: MOOD ALTERED
     Route: 048
     Dates: start: 20050207, end: 20050228
  3. BENDROFLUAZIDE [Concomitant]
     Indication: HYPERTENSION
     Route: 065
  4. OMEPRAZOLE [Concomitant]
     Route: 065
  5. PROSTAP [Concomitant]
     Route: 065
  6. TAMSULOSIN [Concomitant]
     Route: 065
  7. LORAZEPAM [Concomitant]
     Indication: AGITATION
     Route: 065
     Dates: start: 20050321
  8. FLOMAX [Concomitant]
     Route: 065

REACTIONS (6)
  - CEREBROVASCULAR ACCIDENT [None]
  - DRUG INTERACTION [None]
  - FACIAL PARESIS [None]
  - GASTROENTERITIS [None]
  - HEMIPARESIS [None]
  - THERAPEUTIC AGENT TOXICITY [None]
